FAERS Safety Report 23865789 (Version 1)
Quarter: 2024Q2

REPORT INFORMATION
  Report Type: Spontaneous
  Country: US (occurrence: US)
  Receive Date: 20240517
  Receipt Date: 20240517
  Transmission Date: 20240716
  Serious: No
  Sender: FDA-Public Use
  Company Number: US-HIKMA PHARMACEUTICALS USA INC.-US-H14001-23-63414

PATIENT
  Sex: Female

DRUGS (1)
  1. PREDNISONE [Suspect]
     Active Substance: PREDNISONE
     Indication: Product used for unknown indication
     Dosage: 5 DOSAGE FORM
     Route: 065

REACTIONS (4)
  - Blood potassium decreased [Unknown]
  - Skin haemorrhage [Recovering/Resolving]
  - Rash macular [Recovering/Resolving]
  - Skin disorder [Recovering/Resolving]
